FAERS Safety Report 24137586 (Version 2)
Quarter: 2024Q3

REPORT INFORMATION
  Report Type: Spontaneous
  Country: US (occurrence: US)
  Receive Date: 20240725
  Receipt Date: 20240911
  Transmission Date: 20241017
  Serious: No
  Sender: ABBVIE
  Company Number: US-ABBVIE-5847539

PATIENT
  Age: 37 Year
  Sex: Female
  Weight: 95 kg

DRUGS (9)
  1. BOTOX [Suspect]
     Active Substance: ONABOTULINUMTOXINA
     Indication: Migraine prophylaxis
     Dosage: TIME INTERVAL: AS NECESSARY: 100 UNITS
     Route: 030
     Dates: start: 2022, end: 2022
  2. NURTEC ODT [Suspect]
     Active Substance: RIMEGEPANT SULFATE
     Indication: Migraine
     Dosage: TIME INTERVAL: AS NECESSARY
     Route: 048
     Dates: start: 2023, end: 202405
  3. FIORICET WITH CODEINE [Suspect]
     Active Substance: ACETAMINOPHEN\BUTALBITAL\CAFFEINE\CODEINE PHOSPHATE
     Indication: Migraine
     Dosage: TIME INTERVAL: AS NECESSARY
     Route: 048
     Dates: start: 202105, end: 202405
  4. ZOLOFT [Concomitant]
     Active Substance: SERTRALINE HYDROCHLORIDE
     Indication: Depression
     Route: 048
  5. ZOFRAN [Concomitant]
     Active Substance: ONDANSETRON HYDROCHLORIDE
     Indication: Nausea
     Dosage: TIME INTERVAL: AS NECESSARY
     Route: 048
  6. TYLENOL [Concomitant]
     Active Substance: ACETAMINOPHEN
     Indication: Pain management
     Dosage: TIME INTERVAL: AS NECESSARY
     Route: 048
  7. MOTRIN [Concomitant]
     Active Substance: IBUPROFEN
     Indication: Pain management
     Dosage: TIME INTERVAL: AS NECESSARY
     Route: 048
     Dates: end: 202405
  8. UNISOM SLEEPTABS [Concomitant]
     Active Substance: DOXYLAMINE SUCCINATE
     Indication: Sleep disorder therapy
     Route: 048
     Dates: start: 202402
  9. ZYRTEC [Concomitant]
     Active Substance: CETIRIZINE HYDROCHLORIDE
     Indication: Seasonal allergy
     Dosage: TIME INTERVAL: AS NECESSARY
     Route: 048
     Dates: start: 202403

REACTIONS (1)
  - Maternal exposure during pregnancy [Unknown]
